FAERS Safety Report 10449619 (Version 1)
Quarter: 2014Q3

REPORT INFORMATION
  Report Type: Report from Study
  Country: US (occurrence: US)
  Receive Date: 20140912
  Receipt Date: 20140912
  Transmission Date: 20150326
  Serious: Yes (Other)
  Sender: FDA-Public Use
  Company Number: US-JNJFOC-20140908649

PATIENT
  Age: 35 Year
  Sex: Male
  Weight: 113.4 kg

DRUGS (8)
  1. LEFLUNOMIDE. [Concomitant]
     Active Substance: LEFLUNOMIDE
     Indication: ANKYLOSING SPONDYLITIS
     Route: 048
     Dates: start: 2011
  2. METHYLPHENIDATE [Concomitant]
     Active Substance: METHYLPHENIDATE
     Indication: SLEEP APNOEA SYNDROME
     Route: 048
     Dates: start: 2012
  3. NABUMETONE. [Concomitant]
     Active Substance: NABUMETONE
     Indication: ANKYLOSING SPONDYLITIS
     Route: 048
     Dates: start: 2011
  4. SIMVASTATIN. [Concomitant]
     Active Substance: SIMVASTATIN
     Indication: BLOOD TRIGLYCERIDES INCREASED
     Route: 048
     Dates: start: 2014
  5. GABAPENTIN. [Concomitant]
     Active Substance: GABAPENTIN
     Indication: ANKYLOSING SPONDYLITIS
     Route: 048
     Dates: start: 2011
  6. ACETAMINOPHEN AND TRAMADOL HYDROCHLORIDE [Concomitant]
     Indication: ANKYLOSING SPONDYLITIS
     Dosage: 75-650MG
     Route: 048
     Dates: start: 2011
  7. ALLOPURINOL. [Concomitant]
     Active Substance: ALLOPURINOL
     Indication: ANKYLOSING SPONDYLITIS
     Route: 048
     Dates: start: 2011
  8. SIMPONI [Suspect]
     Active Substance: GOLIMUMAB
     Indication: ANKYLOSING SPONDYLITIS
     Route: 058
     Dates: start: 2011

REACTIONS (3)
  - White blood cell count increased [Unknown]
  - Blood triglycerides decreased [Unknown]
  - Diverticulitis [Not Recovered/Not Resolved]

NARRATIVE: CASE EVENT DATE: 20140828
